FAERS Safety Report 9114195 (Version 1)
Quarter: 2013Q1

REPORT INFORMATION
  Report Type: Spontaneous
  Country: US (occurrence: US)
  Receive Date: 20130208
  Receipt Date: 20130208
  Transmission Date: 20140127
  Serious: No
  Sender: FDA-Public Use
  Company Number: US-PFIZER INC-2013047573

PATIENT
  Sex: Female

DRUGS (2)
  1. PREMARIN [Suspect]
     Indication: HORMONE REPLACEMENT THERAPY
     Dosage: UNK, 2-3 TIMES/WEEK
  2. PREMARIN [Suspect]
     Indication: URETHRAL STENOSIS

REACTIONS (3)
  - Breast pain [Unknown]
  - Breast tenderness [Unknown]
  - Expired drug administered [Unknown]
